FAERS Safety Report 10671488 (Version 1)
Quarter: 2014Q4

REPORT INFORMATION
  Report Type: Spontaneous
  Country: FR (occurrence: FR)
  Receive Date: 20141223
  Receipt Date: 20141223
  Transmission Date: 20150529
  Serious: Yes (Hospitalization, Other)
  Sender: FDA-Public Use
  Company Number: FR-UCBSA-2014022014

PATIENT
  Age: 0 Year
  Sex: Male
  Weight: 1.47 kg

DRUGS (5)
  1. KEPPRA [Suspect]
     Active Substance: LEVETIRACETAM
     Indication: JUVENILE MYOCLONIC EPILEPSY
     Dosage: UNK
     Route: 064
     Dates: end: 20140714
  2. LAMICTAL [Suspect]
     Active Substance: LAMOTRIGINE
     Indication: JUVENILE MYOCLONIC EPILEPSY
     Dosage: UNK
     Route: 064
     Dates: end: 20140714
  3. STILNOX [Suspect]
     Active Substance: ZOLPIDEM TARTRATE
     Indication: PRODUCT USED FOR UNKNOWN INDICATION
     Dosage: UNK
     Route: 064
     Dates: end: 20140714
  4. ADALAT [Concomitant]
     Active Substance: NIFEDIPINE
     Indication: PREMATURE DELIVERY
     Dosage: UNK
     Route: 064
     Dates: end: 20140714
  5. MAGNESIUM SULPHATE [Concomitant]
     Active Substance: MAGNESIUM SULFATE
     Indication: PREMATURE DELIVERY
     Dosage: UNK
     Route: 064
     Dates: end: 20140714

REACTIONS (4)
  - Abscess [Unknown]
  - Premature baby [Recovered/Resolved with Sequelae]
  - Apnoea neonatal [Unknown]
  - Foetal exposure during pregnancy [Unknown]

NARRATIVE: CASE EVENT DATE: 201407
